FAERS Safety Report 7681922-5 (Version None)
Quarter: 2011Q3

REPORT INFORMATION
  Report Type: 
  Country: None (occurrence: None)
  Receive Date: 20110815
  Receipt Date: 20110805
  Transmission Date: 20111222
  Serious: Yes (Hospitalization)
  Sender: FDA-Public Use
  Company Number: US-BIOGENIDEC-2010BI039570

PATIENT
  Sex: Female

DRUGS (3)
  1. AVONEX [Suspect]
     Indication: MULTIPLE SCLEROSIS
     Route: 030
     Dates: start: 20080715, end: 20100831
  2. AVONEX [Suspect]
     Route: 030
     Dates: start: 20101001
  3. AVONEX [Suspect]
     Route: 030
     Dates: start: 20070701

REACTIONS (2)
  - SWELLING [None]
  - OSTEOARTHRITIS [None]
